FAERS Safety Report 20379133 (Version 2)
Quarter: 2022Q3

REPORT INFORMATION
  Report Type: Spontaneous
  Country: US (occurrence: US)
  Receive Date: 20220126
  Receipt Date: 20220804
  Transmission Date: 20221027
  Serious: No
  Sender: FDA-Public Use
  Company Number: US-PFIZER INC-2019190158

PATIENT
  Age: 14 Year
  Sex: Female

DRUGS (3)
  1. XELJANZ [Suspect]
     Active Substance: TOFACITINIB CITRATE
     Indication: Alopecia areata
     Dosage: 10 MG, DAILY
     Dates: start: 201909
  2. XELJANZ [Suspect]
     Active Substance: TOFACITINIB CITRATE
     Indication: Alopecia
     Dosage: 5 MG, DAILY
  3. XELJANZ [Suspect]
     Active Substance: TOFACITINIB CITRATE
     Dosage: 5 MG, 2X/DAY

REACTIONS (4)
  - Drug effective for unapproved indication [Unknown]
  - Immune system disorder [Unknown]
  - Off label use [Unknown]
  - Off label use [Unknown]

NARRATIVE: CASE EVENT DATE: 20190901
